FAERS Safety Report 11908361 (Version 1)
Quarter: 2016Q1

REPORT INFORMATION
  Report Type: Spontaneous
  Country: US (occurrence: US)
  Receive Date: 20160111
  Receipt Date: 20160111
  Transmission Date: 20160526
  Serious: No
  Sender: FDA-Public Use
  Company Number: US-GLAXOSMITHKLINE-US2016001662

PATIENT
  Age: 75 Year
  Sex: Male

DRUGS (1)
  1. ABREVA [Suspect]
     Active Substance: DOCOSANOL
     Indication: PRODUCT USED FOR UNKNOWN INDICATION
     Dosage: UNK
     Dates: start: 20151224, end: 20160101

REACTIONS (4)
  - Product use issue [Unknown]
  - Lip swelling [Unknown]
  - Erythema [Unknown]
  - Condition aggravated [Unknown]
